FAERS Safety Report 7983423-3 (Version None)
Quarter: 2011Q4

REPORT INFORMATION
  Report Type: 
  Country: None (occurrence: None)
  Receive Date: 20111215
  Receipt Date: 20111209
  Transmission Date: 20120403
  Serious: Yes (Other)
  Sender: FDA-Public Use
  Company Number: CHPA2011US017843

PATIENT
  Age: 42 Year
  Sex: Male

DRUGS (2)
  1. HABITROL [Suspect]
     Indication: SMOKING CESSATION THERAPY
     Dosage: 21 MG, QD
     Route: 062
  2. LEVEMIR [Concomitant]
     Indication: DIABETES MELLITUS
     Dosage: 20 U, BID

REACTIONS (1)
  - HYPERTENSION [None]
